FAERS Safety Report 13404937 (Version 2)
Quarter: 2017Q2

REPORT INFORMATION
  Report Type: Report from Study
  Country: US (occurrence: US)
  Receive Date: 20170405
  Receipt Date: 20170419
  Transmission Date: 20170830
  Serious: Yes (Death, Life-Threatening, Hospitalization, Disabling)
  Sender: FDA-Public Use
  Company Number: US-SA-2017SA057605

PATIENT
  Age: 77 Year
  Sex: Male
  Weight: 67 kg

DRUGS (1)
  1. TAXOTERE [Suspect]
     Active Substance: DOCETAXEL
     Indication: TRANSITIONAL CELL CARCINOMA
     Route: 042
     Dates: start: 20170215, end: 20170215

REACTIONS (5)
  - Respiratory failure [Fatal]
  - Dysphagia [Unknown]
  - Pneumonia aspiration [Fatal]
  - Condition aggravated [Not Recovered/Not Resolved]
  - Mucosal inflammation [Not Recovered/Not Resolved]

NARRATIVE: CASE EVENT DATE: 20170224
